FAERS Safety Report 4807698-4 (Version None)
Quarter: 2005Q4

REPORT INFORMATION
  Report Type: 
  Country: None (occurrence: None)
  Receive Date: 20051020
  Receipt Date: 20051007
  Transmission Date: 20060501
  Serious: Yes (Life-Threatening, Hospitalization, Disabling)
  Sender: FDA-Public Use
  Company Number: CA009-05-0296

PATIENT
  Age: 56 Year
  Sex: Female

DRUGS (1)
  1. ABRAXANE [Suspect]
     Indication: MALIGNANT NEOPLASM PROGRESSION
     Dosage: INITIAL DOSE 176 MG, LAST DOSE  179 MG, 3 CYCLES 9 DOSES; INTRAVENOUS DRIP
     Route: 041
     Dates: start: 20050118, end: 20050405

REACTIONS (9)
  - CARDIAC FAILURE CONGESTIVE [None]
  - CLOSTRIDIAL INFECTION [None]
  - DISEASE PROGRESSION [None]
  - ENTEROCOCCAL INFECTION [None]
  - HYPOXIA [None]
  - RESPIRATORY FAILURE [None]
  - SMALL INTESTINAL OBSTRUCTION [None]
  - STAPHYLOCOCCAL BACTERAEMIA [None]
  - VENTRICULAR DYSFUNCTION [None]
